FAERS Safety Report 7054276-5 (Version None)
Quarter: 2010Q4

REPORT INFORMATION
  Report Type: 
  Country: None (occurrence: None)
  Receive Date: 20101020
  Receipt Date: 20101001
  Transmission Date: 20110411
  Serious: Yes (Hospitalization)
  Sender: FDA-Public Use
  Company Number: US-BAYER-201020429NA

PATIENT
  Age: 45 Year
  Sex: Female
  Weight: 75 kg

DRUGS (28)
  1. YASMIN [Suspect]
     Indication: CONTRACEPTION
     Route: 048
     Dates: start: 20080307
  2. YAZ [Suspect]
     Indication: PRODUCT USED FOR UNKNOWN INDICATION
     Route: 048
  3. BIAXIN [Concomitant]
     Dates: start: 20050215
  4. SULFAMETH/TRIMETHROPRIM [Concomitant]
     Dates: start: 20050404
  5. COUMADIN [Concomitant]
     Dates: start: 20050404
  6. WARFARIN [Concomitant]
     Dates: start: 20050421
  7. METOPROLOL TARTRATE [Concomitant]
     Indication: HYPERTENSION
     Dates: start: 19860101
  8. LISINOPRIL [Concomitant]
     Indication: HYPERTENSION
     Dates: start: 19860101
  9. IBUPROFEN [Concomitant]
  10. MIRAPEX [Concomitant]
     Indication: RESTLESS LEGS SYNDROME
     Dates: start: 20030101
  11. CLODERM [Concomitant]
     Dates: start: 20021201
  12. FUROSEMIDE [Concomitant]
     Dates: start: 20021201
  13. AZOR [Concomitant]
     Dates: start: 20021201
  14. CYANOCOBALAMIN [Concomitant]
     Dates: start: 20021201
  15. KETOCONAZOLE [Concomitant]
     Dates: start: 20021201
  16. PROMETHAZINE W/ CODEINE [Concomitant]
     Dates: start: 20021201
  17. CARVEDILOL [Concomitant]
     Dates: start: 20021201
  18. HYDROMET SYRUP [Concomitant]
     Dates: start: 20021201
  19. DIPHENOXYLATE HCL + ATROPINE SULFATE [Concomitant]
     Dates: start: 20021201
  20. METHYPREDNISONE [Concomitant]
     Dates: start: 20021201
  21. DIAZEPAM [Concomitant]
     Dates: start: 20021201
  22. HYDROCODONE BITARTRATE + ACETAMINOPHEN [Concomitant]
     Dates: start: 20021201
  23. MEDROXYPROGESTERONE [Concomitant]
     Dates: start: 20021201
  24. HUMIBID [Concomitant]
     Dates: start: 20021201
  25. CODITUSS [Concomitant]
     Dates: start: 20021201
  26. NEXIUM [Concomitant]
     Dates: start: 20021201
  27. CEPHALEXIN [Concomitant]
     Dates: start: 20021201
  28. PRINIVIL [Concomitant]

REACTIONS (2)
  - DEEP VEIN THROMBOSIS [None]
  - PELVIC PAIN [None]
